FAERS Safety Report 13556283 (Version 2)
Quarter: 2020Q3

REPORT INFORMATION
  Report Type: Spontaneous
  Country: US (occurrence: US)
  Receive Date: 20170517
  Receipt Date: 20200803
  Transmission Date: 20201102
  Serious: No
  Sender: FDA-Public Use
  Company Number: US-SA-2017SA008281

PATIENT

DRUGS (3)
  1. TOUJEO [Suspect]
     Active Substance: INSULIN GLARGINE
     Dosage: 25 UNITS DAILY
     Route: 065
  2. METFORMIN [Concomitant]
     Active Substance: METFORMIN HYDROCHLORIDE
     Dosage: UNK
     Route: 065
  3. TOUJEO [Suspect]
     Active Substance: INSULIN GLARGINE
     Indication: TYPE 2 DIABETES MELLITUS
     Dosage: 10 IU, QD
     Route: 065
     Dates: start: 201606

REACTIONS (3)
  - Device issue [Unknown]
  - Incorrect dose administered by device [Unknown]
  - Blood glucose increased [Unknown]

NARRATIVE: CASE EVENT DATE: 201701
